FAERS Safety Report 4383291-5 (Version None)
Quarter: 2004Q2

REPORT INFORMATION
  Report Type: 
  Country: None (occurrence: None)
  Receive Date: 20040618
  Receipt Date: 20040527
  Transmission Date: 20050107
  Serious: Yes (Hospitalization)
  Sender: FDA-Public Use
  Company Number: EWC040539430

PATIENT
  Age: 48 Year
  Sex: Male
  Weight: 90 kg

DRUGS (5)
  1. HUMULIN 70/30 [Suspect]
     Indication: DIABETES MELLITUS
     Dosage: 34 U/2 DAY
     Dates: start: 20040219
  2. VASLIP (CERIVASTATIN SODIUM) [Concomitant]
  3. ENAP (ENALAPRIL) [Concomitant]
  4. ASPIRIN [Concomitant]
  5. METOPROLOL TARTRATE [Concomitant]

REACTIONS (1)
  - HOSPITALISATION [None]
